FAERS Safety Report 23548660 (Version 1)
Quarter: 2024Q1

REPORT INFORMATION
  Report Type: Spontaneous
  Country: US (occurrence: None)
  Receive Date: 20240220
  Receipt Date: 20240220
  Transmission Date: 20240409
  Serious: Yes (Hospitalization)
  Sender: FDA-Public Use
  Company Number: None

PATIENT
  Sex: Female

DRUGS (4)
  1. GANIRELIX ACETATE [Suspect]
     Active Substance: GANIRELIX ACETATE
     Indication: Rectal cancer
     Dosage: FREQUENCY : AS DIRECTED;?STRENGTH: 250MCG/0.5?
     Route: 058
     Dates: start: 202401
  2. FOLLISTIM AQ [Suspect]
     Active Substance: FOLLITROPIN
  3. LEUPROLIDE ACET 2-WEEK [Concomitant]
  4. CAPECITABINE [Concomitant]

REACTIONS (1)
  - Emergency care [None]
